FAERS Safety Report 9031832 (Version 2)
Quarter: 2013Q1

REPORT INFORMATION
  Report Type: Report from Study
  Country: US (occurrence: US)
  Receive Date: 20130124
  Receipt Date: 20130301
  Transmission Date: 20140127
  Serious: Yes (Hospitalization, Other)
  Sender: FDA-Public Use
  Company Number: US-ABBOTT-13P-163-1037420-00

PATIENT
  Sex: Male
  Weight: 66.28 kg

DRUGS (3)
  1. HUMIRA [Suspect]
     Indication: CROHN^S DISEASE
     Dosage: 160 MG LOADING DOSE
     Route: 058
     Dates: start: 201110, end: 201110
  2. HUMIRA [Suspect]
     Dosage: 160 MG LOADING DOSE
     Route: 058
     Dates: start: 20130115, end: 20130115
  3. CENTRUM SILVER [Concomitant]
     Indication: PRODUCT USED FOR UNKNOWN INDICATION

REACTIONS (7)
  - Intestinal fistula [Recovered/Resolved]
  - Anal fistula [Recovered/Resolved]
  - Crohn^s disease [Recovered/Resolved]
  - Furuncle [Not Recovered/Not Resolved]
  - Rectal discharge [Not Recovered/Not Resolved]
  - Bacterial infection [Recovered/Resolved]
  - Surgery [Unknown]
